FAERS Safety Report 17856772 (Version 1)
Quarter: 2020Q2

REPORT INFORMATION
  Report Type: Spontaneous
  Country: FR (occurrence: FR)
  Receive Date: 20200603
  Receipt Date: 20200603
  Transmission Date: 20200714
  Serious: Yes (Hospitalization, Other)
  Sender: FDA-Public Use
  Company Number: FR-BRISTOL-MYERS SQUIBB COMPANY-BMS-2020-043104

PATIENT
  Age: 84 Year
  Sex: Male

DRUGS (1)
  1. OPDIVO [Suspect]
     Active Substance: NIVOLUMAB
     Indication: RENAL CANCER
     Dosage: 80 MILLIGRAM
     Route: 041
     Dates: start: 20200513

REACTIONS (5)
  - Anaphylactoid reaction [Recovered/Resolved]
  - Prescribed underdose [Unknown]
  - Urticaria [Recovered/Resolved]
  - Hypertension [Recovered/Resolved]
  - Oral pruritus [Recovered/Resolved]

NARRATIVE: CASE EVENT DATE: 20200513
